FAERS Safety Report 12390724 (Version 1)
Quarter: 2016Q2

REPORT INFORMATION
  Report Type: Spontaneous
  Country: US (occurrence: US)
  Receive Date: 20160520
  Receipt Date: 20160520
  Transmission Date: 20160815
  Serious: Yes (Hospitalization)
  Sender: FDA-Public Use
  Company Number: US-UNITED THERAPEUTICS-UNT-2016-007784

PATIENT
  Age: 73 Year
  Sex: Male
  Weight: 71.66 kg

DRUGS (1)
  1. REMODULIN [Suspect]
     Active Substance: TREPROSTINIL
     Indication: PULMONARY HYPERTENSION
     Dosage: 0.0175 ?G/KG, CONTINUING
     Route: 058
     Dates: start: 20150812

REACTIONS (1)
  - Lung disorder [Unknown]

NARRATIVE: CASE EVENT DATE: 20160503
